FAERS Safety Report 7473967-5 (Version None)
Quarter: 2011Q2

REPORT INFORMATION
  Report Type: 
  Country: None (occurrence: None)
  Receive Date: 20110511
  Receipt Date: 20081103
  Transmission Date: 20111010
  Serious: Yes (Death, Hospitalization, Other)
  Sender: FDA-Public Use
  Company Number: US-BAYER-200710765BWH

PATIENT
  Age: 82 Year
  Sex: Male
  Weight: 67.574 kg

DRUGS (31)
  1. TRASYLOL [Suspect]
  2. PLENDIL [Concomitant]
     Dosage: 10 MG, QD
     Route: 048
  3. ANCEF [Concomitant]
     Dosage: 2 G, UNK
     Route: 042
     Dates: start: 20060327
  4. EPINEPHRINE [Concomitant]
     Dosage: UNK
     Dates: start: 20060327
  5. PROTAMINE SULFATE [Concomitant]
     Dosage: 550 MG, UNK
     Dates: start: 20060327, end: 20060327
  6. OMEPRAZOLE [Concomitant]
     Dosage: 20 MG, QD
     Route: 048
  7. BACTROBAN [Concomitant]
     Dosage: UNK
     Route: 061
     Dates: start: 20060320
  8. MORPHINE [Concomitant]
     Route: 042
  9. REGLAN [Concomitant]
     Route: 042
  10. MAGNESIUM SULFATE [Concomitant]
     Route: 042
  11. AMIODARONE HCL [Concomitant]
     Dosage: 600 MG, QD/EVENING
     Route: 048
     Dates: start: 20060320, end: 20060322
  12. MIDAZOLAM [Concomitant]
     Route: 042
  13. LOPRESSOR [Concomitant]
     Dosage: 25 MG, BID
     Route: 048
     Dates: start: 20060320
  14. ROCURONIUM [Concomitant]
     Dosage: UNK
     Route: 042
     Dates: start: 20060327
  15. PLASMA [Concomitant]
     Dosage: 2 U, UNK
     Route: 042
     Dates: start: 20060327
  16. TRASYLOL [Suspect]
     Indication: CORONARY ARTERY BYPASS
     Dosage: 1 ML, ONCE,TEST
     Route: 042
     Dates: start: 20060327, end: 20060327
  17. ZOCOR [Concomitant]
     Dosage: 40 MG, QD
     Route: 048
  18. FERROUS SULFATE TAB [Concomitant]
     Dosage: 324 MG, X2
     Route: 048
     Dates: start: 20060320
  19. EPOETIN ALFA [Concomitant]
     Dosage: 10000 U, TIW
     Route: 058
     Dates: start: 20060321
  20. PLATELETS [Concomitant]
     Dosage: 6 U, UNK
     Route: 042
     Dates: start: 20060327
  21. RED BLOOD CELLS [Concomitant]
     Dosage: 3 U, UNK
     Route: 042
     Dates: start: 20060327
  22. TRASYLOL [Suspect]
     Indication: MITRAL VALVE REPAIR
     Dosage: 50 ML, Q1HR
     Route: 042
     Dates: start: 20060327, end: 20060327
  23. ZETIA [Concomitant]
     Dosage: 10 MG, QD
     Route: 048
  24. PLAVIX [Concomitant]
     Dosage: 75 MG, QD
     Route: 048
  25. LEVAQUIN [Concomitant]
     Dosage: 250 MG, Q24HOURS
     Route: 048
     Dates: start: 20060322
  26. TRASYLOL [Suspect]
     Indication: AORTIC VALVE REPLACEMENT
     Dosage: 200 ML, ONCE
     Route: 042
     Dates: start: 20060327, end: 20060327
  27. LISINOPRIL [Concomitant]
     Dosage: 20 MG, QD
     Route: 048
  28. LASIX [Concomitant]
     Dosage: 20 MG, QD
     Route: 048
  29. INSULIN [INSULIN] [Concomitant]
     Route: 042
  30. NITROGLYCERIN [Concomitant]
     Dosage: UNK UNK, PRN
     Route: 048
  31. CONTRAST MEDIA [Concomitant]
     Dosage: UNK
     Dates: start: 19950101

REACTIONS (20)
  - CARDIAC VALVE VEGETATION [None]
  - ANXIETY [None]
  - CARDIAC FAILURE [None]
  - DEATH [None]
  - PAIN [None]
  - UNEVALUABLE EVENT [None]
  - INFECTION [None]
  - RENAL FAILURE [None]
  - ANAEMIA [None]
  - ATRIAL FIBRILLATION [None]
  - CARDIAC FAILURE CONGESTIVE [None]
  - BLOOD POTASSIUM INCREASED [None]
  - RESPIRATORY FAILURE [None]
  - COMA [None]
  - COAGULOPATHY [None]
  - INJURY [None]
  - DYSPNOEA [None]
  - EMOTIONAL DISORDER [None]
  - HEART VALVE INCOMPETENCE [None]
  - EMOTIONAL DISTRESS [None]
